FAERS Safety Report 25360415 (Version 3)
Quarter: 2025Q3

REPORT INFORMATION
  Report Type: Spontaneous
  Country: US (occurrence: US)
  Receive Date: 20250527
  Receipt Date: 20250917
  Transmission Date: 20251021
  Serious: Yes (Other)
  Sender: SANOFI AVENTIS
  Company Number: US-SA-2025SA148622

PATIENT
  Age: 64 Year
  Sex: Female

DRUGS (1)
  1. DUPIXENT [Suspect]
     Active Substance: DUPILUMAB
     Indication: Asthma
     Dosage: 300 MG, QOW
     Route: 058

REACTIONS (9)
  - Haematochezia [Recovered/Resolved]
  - Nasal congestion [Recovering/Resolving]
  - Hyposmia [Not Recovered/Not Resolved]
  - Sinus pain [Unknown]
  - Epistaxis [Unknown]
  - Condition aggravated [Unknown]
  - Sinusitis [Unknown]
  - Asthma [Unknown]
  - Lack of injection site rotation [Unknown]

NARRATIVE: CASE EVENT DATE: 20250521
